FAERS Safety Report 5603428-7 (Version None)
Quarter: 2008Q1

REPORT INFORMATION
  Report Type: 
  Country: None (occurrence: None)
  Receive Date: 20080123
  Receipt Date: 20080121
  Transmission Date: 20080703
  Serious: Yes (Death, Hospitalization, Other)
  Sender: FDA-Public Use
  Company Number: 2007SP011513

PATIENT
  Age: 29 Year
  Sex: Female
  Weight: 44 kg

DRUGS (18)
  1. TEMODAL [Suspect]
     Indication: OLIGODENDROGLIOMA
     Dosage: 75 MG;QD;PO, 200 MG/M2;QD;PO
     Route: 048
     Dates: start: 20061027, end: 20061212
  2. TEMODAL [Suspect]
     Indication: OLIGODENDROGLIOMA
     Dosage: 75 MG;QD;PO, 200 MG/M2;QD;PO
     Route: 048
     Dates: start: 20070110, end: 20070111
  3. ALEVIATIN [Concomitant]
  4. UNASYN [Concomitant]
  5. FLUMARIN [Concomitant]
  6. ZONISAMIDE [Concomitant]
  7. TAKEPRON OD [Concomitant]
  8. MAGNESIUM OXIDE [Concomitant]
  9. NASEA [Concomitant]
  10. BIOFERMIN R [Concomitant]
  11. GASTER D [Concomitant]
  12. GASTER [Concomitant]
  13. PRIMPERAN INJ [Concomitant]
  14. ALEVIATIN [Concomitant]
  15. KYTRIL [Concomitant]
  16. BUP-4 [Concomitant]
  17. FERROMIA [Concomitant]
  18. HEPATOPROTECTOR [Concomitant]

REACTIONS (7)
  - BRAIN OEDEMA [None]
  - DISEASE PROGRESSION [None]
  - DRUG INEFFECTIVE [None]
  - LYMPHOCYTE COUNT DECREASED [None]
  - NEOPLASM RECURRENCE [None]
  - PNEUMONIA ASPIRATION [None]
  - SEPSIS [None]
